FAERS Safety Report 23105784 (Version 2)
Quarter: 2024Q1

REPORT INFORMATION
  Report Type: Spontaneous
  Country: IT (occurrence: IT)
  Receive Date: 20231025
  Receipt Date: 20240103
  Transmission Date: 20240410
  Serious: Yes (Hospitalization, Other)
  Sender: FDA-Public Use
  Company Number: IT-BIOGEN-2023BI01232186

PATIENT
  Age: 13 Year
  Sex: Female

DRUGS (3)
  1. TYSABRI [Suspect]
     Active Substance: NATALIZUMAB
     Indication: Multiple sclerosis
     Dosage: FIRST INFUSION
     Route: 050
     Dates: start: 202306
  2. TYSABRI [Suspect]
     Active Substance: NATALIZUMAB
     Dosage: SECOND INFUSION
     Route: 050
     Dates: start: 20230721
  3. TYSABRI [Suspect]
     Active Substance: NATALIZUMAB
     Dosage: THIRD INFUSION
     Route: 050
     Dates: start: 20230816

REACTIONS (7)
  - Orthostatic hypotension [Unknown]
  - Hypotension [Unknown]
  - Drug hypersensitivity [Unknown]
  - Vomiting [Unknown]
  - Pruritus [Unknown]
  - Pyrexia [Unknown]
  - Off label use [Unknown]

NARRATIVE: CASE EVENT DATE: 20230601
